FAERS Safety Report 5176564-X (Version None)
Quarter: 2006Q4

REPORT INFORMATION
  Report Type: 
  Country: None (occurrence: None)
  Receive Date: 20061207
  Receipt Date: 20061128
  Transmission Date: 20070319
  Serious: No
  Sender: FDA-Public Use
  Company Number: 2006000146

PATIENT
  Age: 38 Year
  Sex: Female

DRUGS (2)
  1. CEFPODOXIME PROXETIL [Suspect]
     Indication: SINUSITIS
     Dosage: 400 MG, ORAL
     Route: 048
  2. ACETAMINOPHEN [Concomitant]

REACTIONS (2)
  - ASTHENIA [None]
  - HEPATITIS [None]
